FAERS Safety Report 7078996-1 (Version None)
Quarter: 2010Q4

REPORT INFORMATION
  Report Type: 
  Country: None (occurrence: None)
  Receive Date: 20101102
  Receipt Date: 20101020
  Transmission Date: 20110411
  Serious: Yes (Hospitalization, Other)
  Sender: FDA-Public Use
  Company Number: US-AMGEN INC.-KDL439778

PATIENT

DRUGS (3)
  1. ENBREL [Suspect]
     Indication: RHEUMATOID ARTHRITIS
     Dosage: UNK UNK, UNK
  2. METHOTREXATE [Concomitant]
     Dosage: 10 MG, QWK
     Route: 048
  3. REMICADE [Concomitant]

REACTIONS (13)
  - ARTHRALGIA [None]
  - ARTHRITIS [None]
  - CATARACT [None]
  - DIABETES MELLITUS [None]
  - FATIGUE [None]
  - HYPERSENSITIVITY [None]
  - JOINT SWELLING [None]
  - NAUSEA [None]
  - OEDEMA PERIPHERAL [None]
  - RHEUMATOID ARTHRITIS [None]
  - TOOTH DISORDER [None]
  - UPPER RESPIRATORY TRACT INFECTION [None]
  - URTICARIA [None]
